FAERS Safety Report 6249784-0 (Version None)
Quarter: 2009Q2

REPORT INFORMATION
  Report Type: 
  Country: None (occurrence: None)
  Receive Date: 20090629
  Receipt Date: 20090612
  Transmission Date: 20091009
  Serious: Yes (Life-Threatening)
  Sender: FDA-Public Use
  Company Number: GB-AMGEN-US199560

PATIENT
  Sex: Male
  Weight: 83 kg

DRUGS (14)
  1. ENBREL [Suspect]
     Indication: RHEUMATOID ARTHRITIS
     Route: 058
     Dates: start: 20061009, end: 20061020
  2. ENBREL [Suspect]
     Route: 058
     Dates: start: 20070201, end: 20070430
  3. ENBREL [Suspect]
     Dosage: 25MG ONCE WEEKLY OR EVERY 4-5 DAYS
     Dates: start: 20070723
  4. DOLOPHINE HYDROCHLORIDE [Concomitant]
     Indication: RHEUMATOID ARTHRITIS
     Route: 048
  5. ACETAMINOPHEN AND CODEINE PHOSPHATE [Concomitant]
     Dosage: 4 - 5  PER DAY
     Route: 048
  6. ANADIN [Concomitant]
     Dosage: 2 -3 PER DAY
     Route: 048
  7. TRIAMCINOLONE ACETONIDE [Concomitant]
     Dosage: UNKNOWN
  8. TRAMADOL HCL [Concomitant]
     Indication: PAIN
     Dosage: UNKNOWN
     Route: 048
  9. PIRITON [Concomitant]
     Indication: PRURITUS
     Dosage: UNKNOWN
     Route: 048
  10. RAMIPRIL [Concomitant]
     Indication: HYPERTENSION
     Dosage: UNKNOWN
     Route: 048
  11. DOTHIEPIN HYDROCHLORIDE [Concomitant]
     Indication: DEPRESSION
     Dosage: UNKNOWN
  12. BENDROFLUMETHIAZIDE [Concomitant]
     Dosage: UNKNOWN
     Route: 048
  13. METHOTREXATE [Concomitant]
     Indication: RHEUMATOID ARTHRITIS
     Route: 048
  14. FOLIC ACID [Concomitant]
     Indication: RHEUMATOID ARTHRITIS
     Dosage: 5MG FREQUENCY UNSPECIFIED
     Route: 048

REACTIONS (3)
  - ECZEMA [None]
  - HYPOAESTHESIA ORAL [None]
  - ORAL DISCOMFORT [None]
